FAERS Safety Report 8386962-9 (Version None)
Quarter: 2012Q2

REPORT INFORMATION
  Report Type: 
  Country: None (occurrence: None)
  Receive Date: 20120525
  Receipt Date: 20120524
  Transmission Date: 20120825
  Serious: Yes (Disabling, Other)
  Sender: FDA-Public Use
  Company Number: GB-BAYER-2012-051666

PATIENT
  Age: 27 Year
  Sex: Male
  Weight: 64 kg

DRUGS (1)
  1. MOXIFLOXACIN [Suspect]
     Indication: TUBERCULOSIS
     Dosage: DAILY DOSE 400 MG
     Route: 048
     Dates: start: 20111203, end: 20120320

REACTIONS (4)
  - PULMONARY EOSINOPHILIA [None]
  - WEIGHT DECREASED [None]
  - CHEST PAIN [None]
  - PYREXIA [None]
